FAERS Safety Report 9459881 (Version 2)
Quarter: 2013Q4

REPORT INFORMATION
  Report Type: Report from Study
  Country: JP (occurrence: JP)
  Receive Date: 20130815
  Receipt Date: 20131218
  Transmission Date: 20140711
  Serious: Yes (Death)
  Sender: FDA-Public Use
  Company Number: JP-PFIZER INC-2013232104

PATIENT
  Age: 77 Year
  Sex: Female
  Weight: 48.3 kg

DRUGS (13)
  1. REVATIO [Suspect]
     Indication: PULMONARY ARTERIAL HYPERTENSION
     Dosage: 20 MG, 1X/DAY
     Route: 048
     Dates: start: 20110826, end: 20110915
  2. REVATIO [Suspect]
     Dosage: 20 MG, 2X/DAY
     Route: 048
     Dates: start: 20110916, end: 20111013
  3. REVATIO [Suspect]
     Dosage: 20 MG, 3X/DAY
     Route: 048
     Dates: start: 20111014, end: 20120421
  4. WARFARIN [Concomitant]
     Indication: PULMONARY HYPERTENSION
     Dosage: UNK
     Route: 048
     Dates: end: 20120421
  5. LASIX [Concomitant]
     Indication: PULMONARY HYPERTENSION
     Dosage: UNK
     Route: 048
     Dates: end: 20120421
  6. THYRADIN S [Concomitant]
     Dosage: UNK
     Route: 048
     Dates: end: 20120421
  7. RENIVACE [Concomitant]
     Dosage: UNK
     Route: 048
     Dates: end: 20120421
  8. ROZEREM [Concomitant]
     Dosage: UNK
     Route: 048
     Dates: end: 20120421
  9. DEPAS [Concomitant]
     Dosage: UNK
     Route: 048
     Dates: end: 20120421
  10. CALONAL [Concomitant]
     Dosage: UNK
     Route: 048
     Dates: start: 20120307, end: 20120421
  11. BERASUS LA [Concomitant]
     Indication: PULMONARY HYPERTENSION
     Dosage: UNK
     Route: 048
     Dates: start: 20110622, end: 20120421
  12. BONALON [Concomitant]
     Dosage: UNK
     Route: 048
     Dates: start: 20120406, end: 20120421
  13. VOLIBRIS [Concomitant]
     Indication: PULMONARY HYPERTENSION
     Dosage: UNK
     Route: 048
     Dates: start: 20120406, end: 20120421

REACTIONS (1)
  - Cardiac failure [Fatal]
